FAERS Safety Report 11634634 (Version 1)
Quarter: 2015Q4

REPORT INFORMATION
  Report Type: Report from Study
  Country: CA (occurrence: CA)
  Receive Date: 20151015
  Receipt Date: 20151015
  Transmission Date: 20160304
  Serious: Yes (Hospitalization)
  Sender: FDA-Public Use
  Company Number: PHHY2014CA147615

PATIENT
  Age: 77 Year
  Sex: Female

DRUGS (3)
  1. CLOZARIL [Suspect]
     Active Substance: CLOZAPINE
     Dosage: 300 MG QD
     Route: 048
  2. CLOZARIL [Suspect]
     Active Substance: CLOZAPINE
     Indication: SCHIZOPHRENIA
     Dosage: 400 MG QD (25 MG, BID AND 350MG QHS)
     Route: 048
     Dates: start: 20130805, end: 20150111
  3. CLOZARIL [Suspect]
     Active Substance: CLOZAPINE
     Dosage: 200 MG, QD
     Route: 048
     Dates: start: 20150720

REACTIONS (7)
  - Agitation [Recovering/Resolving]
  - Fracture [Unknown]
  - Neutropenia [Unknown]
  - Infection [Unknown]
  - Hallucinations, mixed [Recovering/Resolving]
  - Psychiatric decompensation [Recovering/Resolving]
  - White blood cell count decreased [Unknown]

NARRATIVE: CASE EVENT DATE: 20150111
